FAERS Safety Report 4430546-1 (Version None)
Quarter: 2004Q3

REPORT INFORMATION
  Report Type: 
  Country: None (occurrence: None)
  Receive Date: 20040818
  Receipt Date: 20040805
  Transmission Date: 20050211
  Serious: Yes (Life-Threatening)
  Sender: FDA-Public Use
  Company Number: 2003190298JP

PATIENT
  Age: 77 Year
  Sex: Male
  Weight: 73 kg

DRUGS (8)
  1. CAMPTOSAR [Suspect]
     Indication: LUNG NEOPLASM
     Dosage: 70 MG, CYCLIC, IV DRIP
     Route: 041
     Dates: start: 20031024, end: 20031024
  2. CARBOPLATIN [Suspect]
     Indication: LUNG NEOPLASM
     Dosage: 130 MG, CYCLIC, IV DRIP
     Route: 041
     Dates: start: 20031024, end: 20031024
  3. GASTER [Concomitant]
  4. BETAMETHASONE [Concomitant]
  5. VOLTAREN [Concomitant]
  6. MAGNESIUM OXIDE [Concomitant]
  7. ADALAT [Concomitant]
  8. NELBON [Concomitant]

REACTIONS (1)
  - INTERSTITIAL LUNG DISEASE [None]
